FAERS Safety Report 12785396 (Version 2)
Quarter: 2016Q3

REPORT INFORMATION
  Report Type: Report from Study
  Country: IT (occurrence: IT)
  Receive Date: 20160927
  Receipt Date: 20160929
  Transmission Date: 20161109
  Serious: Yes (Hospitalization)
  Sender: FDA-Public Use
  Company Number: IT-MYLANLABS-2016M1041058

PATIENT

DRUGS (6)
  1. LORAZEPAM. [Suspect]
     Active Substance: LORAZEPAM
     Indication: BIPOLAR DISORDER
     Dosage: 50 MG, TOTAL
     Route: 048
     Dates: start: 20160605, end: 20160605
  2. LORAZEPAM. [Suspect]
     Active Substance: LORAZEPAM
     Indication: BULIMIA NERVOSA
     Dosage: 1 DF, TID
     Route: 048
  3. TRITTICO [Concomitant]
     Active Substance: TRAZODONE HYDROCHLORIDE
     Indication: BULIMIA NERVOSA
     Dosage: 40 GTT
     Route: 048
  4. FLUOXETINE [Suspect]
     Active Substance: FLUOXETINE HYDROCHLORIDE
     Indication: PRODUCT USED FOR UNKNOWN INDICATION
     Dosage: 20 DF, TOTAL
     Route: 048
     Dates: start: 20160605, end: 20160605
  5. WELLBUTRIN [Suspect]
     Active Substance: BUPROPION HYDROCHLORIDE
     Indication: PRODUCT USED FOR UNKNOWN INDICATION
     Dosage: 30 DF TOTAL
     Route: 048
     Dates: start: 20160605, end: 20160605
  6. WELLBUTRIN [Suspect]
     Active Substance: BUPROPION HYDROCHLORIDE
     Dosage: 1 DF, QD
     Route: 048

REACTIONS (6)
  - Drug abuse [Recovering/Resolving]
  - Speech disorder [Recovering/Resolving]
  - Suicide attempt [Recovering/Resolving]
  - Sopor [Recovering/Resolving]
  - Intentional overdose [Unknown]
  - Negativism [Recovering/Resolving]

NARRATIVE: CASE EVENT DATE: 20160605
